FAERS Safety Report 7269176-5 (Version None)
Quarter: 2011Q1

REPORT INFORMATION
  Report Type: 
  Country: None (occurrence: None)
  Receive Date: 20110119
  Receipt Date: 20100930
  Transmission Date: 20110831
  Serious: Yes (Life-Threatening, Other)
  Sender: FDA-Public Use
  Company Number: WIL-002-10-DE

PATIENT
  Age: 25 Year
  Sex: Female

DRUGS (2)
  1. FEMIBION (FOLIC ACID AND METHYLFOLATE) [Concomitant]
  2. WILATE [Suspect]
     Indication: VON WILLEBRAND'S DISEASE
     Dosage: 3600 IU, IV
     Route: 042
     Dates: start: 20100416, end: 20100416

REACTIONS (3)
  - DRUG EXPOSURE DURING PREGNANCY [None]
  - VAGINAL HAEMORRHAGE [None]
  - ANAPHYLACTIC SHOCK [None]
